FAERS Safety Report 21863252 (Version 1)
Quarter: 2023Q1

REPORT INFORMATION
  Report Type: Report from Study
  Country: US (occurrence: US)
  Receive Date: 20230115
  Receipt Date: 20230115
  Transmission Date: 20230417
  Serious: Yes (Other)
  Sender: FDA-Public Use
  Company Number: US-ABBVIE-4268638

PATIENT
  Sex: Male

DRUGS (2)
  1. HUMIRA [Suspect]
     Active Substance: ADALIMUMAB
     Indication: Central nervous system vasculitis
     Route: 058
     Dates: end: 202209
  2. HUMIRA [Suspect]
     Active Substance: ADALIMUMAB
     Indication: Psoriasis
     Route: 058
     Dates: end: 2019

REACTIONS (4)
  - Central nervous system vasculitis [Unknown]
  - Knee operation [Recovered/Resolved]
  - Knee operation [Unknown]
  - Back disorder [Unknown]

NARRATIVE: CASE EVENT DATE: 20080101
